FAERS Safety Report 23892758 (Version 1)
Quarter: 2024Q2

REPORT INFORMATION
  Report Type: Spontaneous
  Country: PT (occurrence: PT)
  Receive Date: 20240524
  Receipt Date: 20240524
  Transmission Date: 20240717
  Serious: Yes (Other)
  Sender: FDA-Public Use
  Company Number: PT-INFARMED-B202405-62

PATIENT
  Age: 30 Year
  Sex: Female

DRUGS (2)
  1. AMOXICILLIN [Suspect]
     Active Substance: AMOXICILLIN
     Indication: Tonsillitis
     Dosage: 1000 MILLIGRAM, TWO TIMES A DAY (1 COMP 12/12H)
     Route: 048
     Dates: start: 20200121, end: 20200122
  2. MOLINAR [Concomitant]
     Indication: Product used for unknown indication
     Dosage: 22400 INTERNATIONAL UNIT, 1 MONTH
     Route: 048

REACTIONS (1)
  - Toxic skin eruption [Recovered/Resolved]

NARRATIVE: CASE EVENT DATE: 20200122
